FAERS Safety Report 4898677-X (Version None)
Quarter: 2006Q1

REPORT INFORMATION
  Report Type: 
  Country: None (occurrence: None)
  Receive Date: 20060202
  Receipt Date: 20000911
  Transmission Date: 20060701
  Serious: Yes (Life-Threatening)
  Sender: FDA-Public Use
  Company Number: DE-2000-BP-01583

PATIENT
  Sex: Female
  Weight: 2.8 kg

DRUGS (6)
  1. VIRAMUNE [Suspect]
     Indication: ACQUIRED IMMUNODEFICIENCY SYNDROME
     Route: 015
     Dates: start: 20000722
  2. MATERNAL FERROUS SULFATE [Concomitant]
     Route: 048
     Dates: start: 20000710, end: 20000722
  3. MATERNAL FOLIC ACID [Concomitant]
     Route: 048
     Dates: start: 20000710, end: 20000722
  4. MATERNAL ZIDOVUDINE [Concomitant]
     Route: 048
     Dates: start: 20000704, end: 20000722
  5. VITAMIN K [Concomitant]
     Indication: NUTRITIONAL SUPPORT
     Route: 030
     Dates: start: 20000722, end: 20000722
  6. TICE BCG [Concomitant]
     Indication: IMMUNISATION
     Route: 023
     Dates: start: 20000722, end: 20000722

REACTIONS (1)
  - NEUTROPENIA [None]
